FAERS Safety Report 19755262 (Version 4)
Quarter: 2023Q2

REPORT INFORMATION
  Report Type: Report from Study
  Country: CO (occurrence: CO)
  Receive Date: 20210827
  Receipt Date: 20230605
  Transmission Date: 20230721
  Serious: Yes (Hospitalization)
  Sender: FDA-Public Use
  Company Number: NVSC2021CO191202

PATIENT
  Sex: Male

DRUGS (1)
  1. COSENTYX [Suspect]
     Active Substance: SECUKINUMAB
     Indication: Psoriatic arthropathy
     Dosage: 300 MG, QMO
     Route: 058
     Dates: start: 20210803

REACTIONS (9)
  - Infarction [Unknown]
  - Chest pain [Unknown]
  - Back pain [Unknown]
  - Angina unstable [Unknown]
  - Illness [Unknown]
  - Pain [Unknown]
  - Fatigue [Unknown]
  - Pruritus [Unknown]
  - Drug ineffective [Unknown]
